FAERS Safety Report 8620310-1 (Version None)
Quarter: 2012Q3

REPORT INFORMATION
  Report Type: 
  Country: None (occurrence: None)
  Receive Date: 20120817
  Receipt Date: 20120817
  Transmission Date: 20120928
  Serious: No
  Sender: FDA-Public Use
  Company Number: None

PATIENT
  Age: 68 Year
  Sex: Female
  Weight: 54.4316 kg

DRUGS (1)
  1. AMOXICILLIN [Suspect]
     Indication: DENTAL OPERATION
     Dosage: 3 X A DAY PILLS - 250 MG 3 X A DAY ~ ONE WEEK DENTAL
     Route: 004
     Dates: start: 20120622, end: 20120804

REACTIONS (3)
  - DEPERSONALISATION [None]
  - DRUG HYPERSENSITIVITY [None]
  - TENDONITIS [None]
